FAERS Safety Report 4877155-8 (Version None)
Quarter: 2005Q4

REPORT INFORMATION
  Report Type: 
  Country: None (occurrence: None)
  Receive Date: 20051206
  Receipt Date: 20050816
  Transmission Date: 20060501
  Serious: No
  Sender: FDA-Public Use
  Company Number: USA0508105566

PATIENT
  Age: 71 Year
  Sex: Female

DRUGS (3)
  1. CYMBALTA [Suspect]
     Indication: NEUROPATHY
     Dosage: 30 MG
     Dates: start: 20050601
  2. NEURONTIN [Concomitant]
  3. ULTRAM [Concomitant]

REACTIONS (1)
  - RENAL PAIN [None]
